FAERS Safety Report 13132253 (Version 2)
Quarter: 2017Q1

REPORT INFORMATION
  Report Type: Spontaneous
  Country: BR (occurrence: BR)
  Receive Date: 20170120
  Receipt Date: 20170131
  Transmission Date: 20170428
  Serious: Yes (Death, Hospitalization, Other)
  Sender: FDA-Public Use
  Company Number: BR-ROCHE-1881462

PATIENT
  Age: 57 Year
  Sex: Male

DRUGS (1)
  1. GAZYVA [Suspect]
     Active Substance: OBINUTUZUMAB
     Indication: CHRONIC LYMPHOCYTIC LEUKAEMIA
     Route: 042
     Dates: start: 20170105

REACTIONS (5)
  - Pulmonary embolism [Fatal]
  - Dizziness [Unknown]
  - Chronic lymphocytic leukaemia [Fatal]
  - Hypotension [Recovering/Resolving]
  - Dyspnoea [Unknown]
